FAERS Safety Report 6009045-1 (Version None)
Quarter: 2008Q4

REPORT INFORMATION
  Report Type: 
  Country: None (occurrence: None)
  Receive Date: 20081216
  Receipt Date: 20081203
  Transmission Date: 20090506
  Serious: Yes (Other)
  Sender: FDA-Public Use
  Company Number: 031683

PATIENT
  Age: 29 Year
  Sex: Female

DRUGS (2)
  1. CLARAVIS [Suspect]
     Dosage: 40 MG, BID, ORAL, 40 MG, SINGLE, ORAL
     Route: 048
     Dates: start: 20080113, end: 20080701
  2. CLARAVIS [Suspect]
     Dosage: 40 MG, BID, ORAL, 40 MG, SINGLE, ORAL
     Route: 048
     Dates: start: 20080810

REACTIONS (5)
  - ABORTION INDUCED [None]
  - BLOOD HUMAN CHORIONIC GONADOTROPIN POSITIVE [None]
  - DRUG EXPOSURE DURING PREGNANCY [None]
  - TREATMENT NONCOMPLIANCE [None]
  - UNINTENDED PREGNANCY [None]
